FAERS Safety Report 8666802 (Version 2)
Quarter: 2012Q4

REPORT INFORMATION
  Report Type: 
  Country: US (occurrence: US)
  Receive Date: 20120716
  Receipt Date: 20121002
  Transmission Date: 20130627
  Serious: No
  Sender: FDA-Public Use
  Company Number: US-TEVA-347719USA

PATIENT
  Age: 37 Year
  Sex: Male
  Weight: 138.92 kg

DRUGS (2)
  1. NUVIGIL [Suspect]
     Indication: SLEEP APNOEA SYNDROME
     Dosage: 250 Milligram Daily;
     Route: 048
     Dates: start: 201205
  2. EFFEXOR-XR [Concomitant]

REACTIONS (2)
  - Hypersexuality [Not Recovered/Not Resolved]
  - Therapeutic response unexpected [Unknown]
